FAERS Safety Report 8804444 (Version 1)
Quarter: 2012Q4

REPORT INFORMATION
  Report Type: 
  Country: US (occurrence: US)
  Receive Date: 20120924
  Receipt Date: 20120924
  Transmission Date: 20130627
  Serious: Yes (Other)
  Sender: FDA-Public Use
  Company Number: US-JNJFOC-20100206287

PATIENT

DRUGS (2)
  1. LEVAQUIN [Suspect]
     Indication: ASTHMA
     Route: 048
  2. LEVAQUIN [Suspect]
     Indication: COUGH
     Route: 048

REACTIONS (1)
  - Tendonitis [Unknown]
